FAERS Safety Report 20896460 (Version 3)
Quarter: 2022Q3

REPORT INFORMATION
  Report Type: Report from Study
  Country: US (occurrence: US)
  Receive Date: 20220531
  Receipt Date: 20220727
  Transmission Date: 20221026
  Serious: Yes (Death, Hospitalization, Other)
  Sender: FDA-Public Use
  Company Number: US-TAKEDA-2022TUS000511

PATIENT
  Sex: Female
  Weight: 63 kg

DRUGS (28)
  1. .ALPHA.1-PROTEINASE INHIBITOR HUMAN [Suspect]
     Active Substance: .ALPHA.1-PROTEINASE INHIBITOR HUMAN
     Indication: Alpha-1 antitrypsin deficiency
     Dosage: 60 MILLIGRAM/KILOGRAM, 1/WEEK
     Route: 042
     Dates: start: 20211025
  2. .ALPHA.1-PROTEINASE INHIBITOR HUMAN [Suspect]
     Active Substance: .ALPHA.1-PROTEINASE INHIBITOR HUMAN
     Indication: Alpha-1 antitrypsin deficiency
     Dosage: 60 MILLIGRAM/KILOGRAM, 1/WEEK
     Route: 042
     Dates: start: 20211025
  3. IPRATROPIUM [Concomitant]
     Active Substance: IPRATROPIUM
  4. ALBUTEROL [Concomitant]
     Active Substance: ALBUTEROL
  5. OXYGEN [Concomitant]
     Active Substance: OXYGEN
  6. ZITHROMAX [Concomitant]
     Active Substance: AZITHROMYCIN DIHYDRATE
  7. SPIRONOLACTONE [Concomitant]
     Active Substance: SPIRONOLACTONE
  8. ASPIRIN [Concomitant]
     Active Substance: ASPIRIN
  9. ACETAMINOPHEN [Concomitant]
     Active Substance: ACETAMINOPHEN
  10. LASIX [Concomitant]
     Active Substance: FUROSEMIDE
  11. POTASSIUM CHLORIDE [Concomitant]
     Active Substance: POTASSIUM CHLORIDE
  12. CLOPIDOGREL [Concomitant]
     Active Substance: CLOPIDOGREL BISULFATE
  13. ATROVENT HFA [Concomitant]
     Active Substance: IPRATROPIUM BROMIDE
  14. FLUTICASONE [Concomitant]
     Active Substance: FLUTICASONE
  15. ADVAIR HFA [Concomitant]
     Active Substance: FLUTICASONE PROPIONATE\SALMETEROL XINAFOATE
  16. DIETARY SUPPLEMENT [Concomitant]
     Active Substance: DIETARY SUPPLEMENT
  17. GARLIC [Concomitant]
     Active Substance: GARLIC
  18. NIACIN [Concomitant]
     Active Substance: NIACIN
  19. PROAIR HFA [Concomitant]
     Active Substance: ALBUTEROL SULFATE
  20. HEPARIN [Concomitant]
     Active Substance: HEPARIN SODIUM
  21. EPINEPHRINE [Concomitant]
     Active Substance: EPINEPHRINE
  22. SODIUM CHLORIDE [Concomitant]
     Active Substance: SODIUM CHLORIDE
  23. DIPHENHYDRAMINE [Concomitant]
     Active Substance: DIPHENHYDRAMINE
  24. ZEMAIRA [Concomitant]
     Active Substance: .ALPHA.1-PROTEINASE INHIBITOR HUMAN
  25. MEQ [Concomitant]
  26. LIDOCAINE [Concomitant]
     Active Substance: LIDOCAINE
  27. Lmx [Concomitant]
     Indication: Product used for unknown indication
     Route: 065
  28. ALBUTEROL SULFATE [Concomitant]
     Active Substance: ALBUTEROL SULFATE

REACTIONS (4)
  - Death [Fatal]
  - Thrombosis [Unknown]
  - Cerebrovascular accident [Unknown]
  - Sciatica [Unknown]
